FAERS Safety Report 21565682 (Version 7)
Quarter: 2023Q2

REPORT INFORMATION
  Report Type: Report from Study
  Country: US (occurrence: US)
  Receive Date: 20221108
  Receipt Date: 20230407
  Transmission Date: 20230721
  Serious: Yes (Other)
  Sender: FDA-Public Use
  Company Number: US-002147023-NVSC2022US250766

PATIENT
  Sex: Male

DRUGS (2)
  1. COSENTYX [Suspect]
     Active Substance: SECUKINUMAB
     Indication: Psoriasis
     Dosage: 300 MG
     Route: 065
  2. COSENTYX [Suspect]
     Active Substance: SECUKINUMAB
     Indication: Psoriatic arthropathy

REACTIONS (6)
  - Psoriatic arthropathy [Recovering/Resolving]
  - Fatigue [Unknown]
  - Pain in extremity [Unknown]
  - Injection site pain [Recovered/Resolved]
  - Urticaria [Unknown]
  - Drug ineffective [Unknown]
